FAERS Safety Report 19324333 (Version 1)
Quarter: 2021Q2

REPORT INFORMATION
  Report Type: Spontaneous
  Country: US (occurrence: US)
  Receive Date: 20210528
  Receipt Date: 20210528
  Transmission Date: 20210717
  Serious: Yes (Death, Other)
  Sender: FDA-Public Use
  Company Number: US-GLAXOSMITHKLINE-US2021GSK106863

PATIENT
  Sex: Male

DRUGS (21)
  1. ZANTAC [Suspect]
     Active Substance: RANITIDINE HYDROCHLORIDE
     Indication: COLITIS
  2. RANITIDINE. [Suspect]
     Active Substance: RANITIDINE
     Indication: PANCREATITIS
     Dosage: 150 MG, QD
     Route: 065
     Dates: start: 200501, end: 201811
  3. ZANTAC [Suspect]
     Active Substance: RANITIDINE HYDROCHLORIDE
     Indication: GASTROOESOPHAGEAL REFLUX DISEASE
     Dosage: 75 MG, QD
     Route: 065
     Dates: start: 200501, end: 201811
  4. ZANTAC [Suspect]
     Active Substance: RANITIDINE HYDROCHLORIDE
     Indication: COLITIS
  5. RANITIDINE CAPSULE [Suspect]
     Active Substance: RANITIDINE
     Indication: GASTROOESOPHAGEAL REFLUX DISEASE
     Dosage: 75 MG, QD
     Route: 065
     Dates: start: 200501, end: 201811
  6. RANITIDINE. [Suspect]
     Active Substance: RANITIDINE
     Indication: GASTROOESOPHAGEAL REFLUX DISEASE
     Dosage: 75 MG, QD
     Route: 065
     Dates: start: 200501, end: 201811
  7. ZANTAC [Suspect]
     Active Substance: RANITIDINE HYDROCHLORIDE
     Indication: COLITIS
  8. ZANTAC [Suspect]
     Active Substance: RANITIDINE HYDROCHLORIDE
     Indication: PANCREATITIS
     Dosage: 150 MG, QD
     Route: 065
     Dates: start: 200501, end: 201811
  9. RANITIDINE CAPSULE [Suspect]
     Active Substance: RANITIDINE
     Indication: COLITIS
  10. RANITIDINE. [Suspect]
     Active Substance: RANITIDINE
     Indication: COLITIS
  11. RANITIDINE. [Suspect]
     Active Substance: RANITIDINE
     Indication: GASTROOESOPHAGEAL REFLUX DISEASE
     Dosage: 75 MG, QD
     Route: 065
     Dates: start: 200501, end: 201811
  12. RANITIDINE. [Suspect]
     Active Substance: RANITIDINE
     Indication: COLITIS
  13. RANITIDINE. [Suspect]
     Active Substance: RANITIDINE
     Indication: GASTROOESOPHAGEAL REFLUX DISEASE
     Dosage: 75 MG, QD
     Route: 065
     Dates: start: 200501, end: 201811
  14. ZANTAC [Suspect]
     Active Substance: RANITIDINE HYDROCHLORIDE
     Indication: GASTROOESOPHAGEAL REFLUX DISEASE
     Dosage: 75 MG, QD
     Route: 065
     Dates: start: 200501, end: 201811
  15. ZANTAC [Suspect]
     Active Substance: RANITIDINE HYDROCHLORIDE
     Indication: GASTROOESOPHAGEAL REFLUX DISEASE
     Dosage: 75 MG, QD
     Route: 065
     Dates: start: 200501, end: 201811
  16. RANITIDINE CAPSULE [Suspect]
     Active Substance: RANITIDINE
     Indication: PANCREATITIS
     Dosage: 150 MG, QD
     Route: 065
     Dates: start: 200501, end: 201811
  17. RANITIDINE. [Suspect]
     Active Substance: RANITIDINE
     Indication: PANCREATITIS
     Dosage: 150 MG, QD
     Route: 065
     Dates: start: 200501, end: 201811
  18. RANITIDINE. [Suspect]
     Active Substance: RANITIDINE
     Indication: PANCREATITIS
     Dosage: 150 MG, QD
     Route: 065
     Dates: start: 200501, end: 201811
  19. ZANTAC [Suspect]
     Active Substance: RANITIDINE HYDROCHLORIDE
     Indication: PANCREATITIS
     Dosage: 150 MG, QD
     Route: 065
     Dates: start: 200501, end: 201811
  20. ZANTAC [Suspect]
     Active Substance: RANITIDINE HYDROCHLORIDE
     Indication: PANCREATITIS
     Dosage: 150 MG, QD
     Route: 065
     Dates: start: 200501, end: 201811
  21. RANITIDINE. [Suspect]
     Active Substance: RANITIDINE
     Indication: COLITIS

REACTIONS (1)
  - Lung neoplasm malignant [Fatal]
